FAERS Safety Report 20639691 (Version 1)
Quarter: 2022Q1

REPORT INFORMATION
  Report Type: Spontaneous
  Country: US (occurrence: US)
  Receive Date: 20220326
  Receipt Date: 20220326
  Transmission Date: 20220424
  Serious: No
  Sender: FDA-Public Use
  Company Number: US-SANOFI-01021918

PATIENT
  Sex: Female

DRUGS (2)
  1. DUPIXENT [Suspect]
     Active Substance: DUPILUMAB
     Dosage: DUPILUMAB 300 Q2W
  2. KETOCONAZOLE [Concomitant]
     Active Substance: KETOCONAZOLE

REACTIONS (1)
  - Erythema [Recovering/Resolving]
